FAERS Safety Report 10066901 (Version 8)
Quarter: 2015Q3

REPORT INFORMATION
  Report Type: Spontaneous
  Country: AR (occurrence: AR)
  Receive Date: 20140409
  Receipt Date: 20150904
  Transmission Date: 20151125
  Serious: Yes (Other)
  Sender: FDA-Public Use
  Company Number: AR-AMGEN INC.-ARGSP2014024520

PATIENT
  Age: 70 Year
  Sex: Female

DRUGS (5)
  1. ENBREL [Suspect]
     Active Substance: ETANERCEPT
     Dosage: 50 MG, QWK
     Route: 065
     Dates: start: 201507
  2. ENBREL [Suspect]
     Active Substance: ETANERCEPT
     Dosage: 50 MG, WEEKLY
     Route: 065
     Dates: start: 20140322, end: 201411
  3. NAPROXEN. [Concomitant]
     Active Substance: NAPROXEN
     Indication: PAIN
     Dosage: 500 MG, 2X/DAY
  4. ACIDO ZOLEDRONICO [Concomitant]
     Active Substance: ZOLEDRONIC ACID
     Dosage: UNK
     Dates: start: 2009
  5. ENBREL [Suspect]
     Active Substance: ETANERCEPT
     Indication: ANKYLOSING SPONDYLITIS
     Dosage: 50 MG, WEEKLY
     Route: 065
     Dates: start: 20070706, end: 201402

REACTIONS (11)
  - Spinal fracture [Recovered/Resolved]
  - Mobility decreased [Recovered/Resolved]
  - Ankylosing spondylitis [Not Recovered/Not Resolved]
  - Breast cancer [Not Recovered/Not Resolved]
  - Eating disorder [Recovered/Resolved]
  - Condition aggravated [Not Recovered/Not Resolved]
  - Cataract [Recovered/Resolved]
  - Sensory loss [Recovered/Resolved]
  - Pain [Recovered/Resolved]
  - Vertebral column mass [Not Recovered/Not Resolved]
  - Arthralgia [Not Recovered/Not Resolved]

NARRATIVE: CASE EVENT DATE: 2009
